FAERS Safety Report 14319421 (Version 3)
Quarter: 2018Q1

REPORT INFORMATION
  Report Type: Spontaneous
  Country: JP (occurrence: JP)
  Receive Date: 20171222
  Receipt Date: 20180115
  Transmission Date: 20180509
  Serious: Yes (Hospitalization)
  Sender: FDA-Public Use
  Company Number: JP-SA-2017SA253629

PATIENT
  Age: 82 Year
  Sex: Male

DRUGS (1)
  1. JEVTANA [Suspect]
     Active Substance: CABAZITAXEL
     Route: 042

REACTIONS (4)
  - Infection [Unknown]
  - Venoocclusive liver disease [Unknown]
  - Hepatic function abnormal [Unknown]
  - Pyrexia [Unknown]
